FAERS Safety Report 5654175-7 (Version None)
Quarter: 2008Q1

REPORT INFORMATION
  Report Type: 
  Country: None (occurrence: None)
  Receive Date: 20080306
  Receipt Date: 20080225
  Transmission Date: 20080703
  Serious: No
  Sender: FDA-Public Use
  Company Number: US-BOEHRINGER INGELHEIM GMBH, GERMANY-2007-BP-24721BP

PATIENT
  Sex: Male

DRUGS (7)
  1. SPIRIVA [Suspect]
     Indication: CHRONIC OBSTRUCTIVE PULMONARY DISEASE
     Route: 055
     Dates: start: 20071101
  2. ADVAIR DISKUS 100/50 [Concomitant]
  3. FLONASE [Concomitant]
  4. ALLOPURINOL [Concomitant]
  5. VERAPAMIL [Concomitant]
  6. FLOMAX [Concomitant]
  7. PLAVIX [Concomitant]

REACTIONS (3)
  - DRUG INEFFECTIVE [None]
  - DYSPNOEA [None]
  - SPINAL COLUMN STENOSIS [None]
